FAERS Safety Report 7472972-2 (Version None)
Quarter: 2011Q2

REPORT INFORMATION
  Report Type: 
  Country: None (occurrence: None)
  Receive Date: 20110511
  Receipt Date: 20110427
  Transmission Date: 20111010
  Serious: Yes (Hospitalization, Other)
  Sender: FDA-Public Use
  Company Number: PHHY2011FR32991

PATIENT
  Sex: Male

DRUGS (7)
  1. PAROXETINE HCL [Concomitant]
     Dosage: UNK
  2. HYDREA [Concomitant]
     Dosage: UNK
  3. DESFERAL [Suspect]
     Dosage: 3 G, QD
     Dates: start: 20090101, end: 20110227
  4. ACTONEL [Concomitant]
     Dosage: UNK
  5. PLAVIX [Suspect]
     Dosage: 1 DF, QD
     Dates: end: 20110303
  6. SOTALOL HCL [Concomitant]
     Dosage: UNK
  7. PHENOXYMETHYL PENICILLIN [Concomitant]
     Dosage: UNK

REACTIONS (6)
  - VISUAL EVOKED POTENTIALS ABNORMAL [None]
  - GRANULOMA [None]
  - OPTIC NEURITIS [None]
  - VISUAL ACUITY REDUCED [None]
  - HYPOAESTHESIA [None]
  - PARAESTHESIA [None]
